FAERS Safety Report 10421906 (Version 2)
Quarter: 2014Q3

REPORT INFORMATION
  Report Type: Spontaneous
  Country: US (occurrence: US)
  Receive Date: 20140901
  Receipt Date: 20140909
  Transmission Date: 20150326
  Serious: Yes (Other)
  Sender: FDA-Public Use
  Company Number: US-AUROBINDO-AUR-APL-2014-09198

PATIENT

DRUGS (8)
  1. ACETAMINOPHEN. [Suspect]
     Active Substance: ACETAMINOPHEN
     Indication: MIGRAINE
  2. SUMATRIPTAN [Suspect]
     Active Substance: SUMATRIPTAN
     Indication: MIGRAINE
  3. LIDOCAINE. [Suspect]
     Active Substance: LIDOCAINE
     Indication: MIGRAINE
  4. ACETAMINOPHEN. [Suspect]
     Active Substance: ACETAMINOPHEN
     Indication: TENSION HEADACHE
     Dosage: UNK
     Route: 064
  5. IBUPROFEN. [Suspect]
     Active Substance: IBUPROFEN
     Indication: TENSION HEADACHE
     Dosage: UNK
     Route: 064
  6. IBUPROFEN. [Suspect]
     Active Substance: IBUPROFEN
     Indication: MIGRAINE
  7. LIDOCAINE. [Suspect]
     Active Substance: LIDOCAINE
     Indication: TENSION HEADACHE
     Dosage: 4 % LIDOCAINE 0.1 ML, EVERY THREE MINUTES
     Route: 064
  8. SUMATRIPTAN [Suspect]
     Active Substance: SUMATRIPTAN
     Indication: TENSION HEADACHE
     Dosage: UNK
     Route: 064

REACTIONS (2)
  - Premature baby [Unknown]
  - Maternal exposure during pregnancy [Unknown]
